FAERS Safety Report 18015391 (Version 8)
Quarter: 2020Q4

REPORT INFORMATION
  Report Type: Report from Study
  Country: US (occurrence: US)
  Receive Date: 20200713
  Receipt Date: 20201209
  Transmission Date: 20210113
  Serious: Yes (Other)
  Sender: FDA-Public Use
  Company Number: US-GLAXOSMITHKLINE-US2020AMR085214

PATIENT
  Age: 76 Year
  Sex: Female

DRUGS (7)
  1. NIRAPARIB [Suspect]
     Active Substance: NIRAPARIB
     Indication: MALIGNANT PERITONEAL NEOPLASM
     Dosage: 200 MG, QD
     Route: 065
     Dates: start: 20200512, end: 20200807
  2. NIRAPARIB [Suspect]
     Active Substance: NIRAPARIB
     Dosage: 200 MG, QD
     Route: 065
  3. NIRAPARIB [Suspect]
     Active Substance: NIRAPARIB
     Dosage: 100 MG, QD
     Route: 065
  4. NIRAPARIB [Suspect]
     Active Substance: NIRAPARIB
     Dosage: 200 MG, QD
     Route: 065
  5. NIRAPARIB [Suspect]
     Active Substance: NIRAPARIB
     Dosage: 100 MG, QD
     Route: 065
     Dates: start: 20200824
  6. NIRAPARIB [Suspect]
     Active Substance: NIRAPARIB
     Dosage: 100 MG, QD
     Route: 065
  7. NIRAPARIB [Suspect]
     Active Substance: NIRAPARIB
     Indication: NEOPLASM MALIGNANT
     Dosage: 200 MG, QD
     Route: 065
     Dates: start: 20200312

REACTIONS (24)
  - Weight decreased [Recovered/Resolved]
  - Off label use [Unknown]
  - Procedural pain [Recovering/Resolving]
  - Erythema [Recovered/Resolved]
  - Arthropod bite [Recovered/Resolved]
  - Initial insomnia [Recovering/Resolving]
  - Blood count abnormal [Unknown]
  - Blood pressure increased [Recovered/Resolved]
  - Anxiety [Unknown]
  - Nail disorder [Unknown]
  - Oral pain [Recovered/Resolved]
  - Drug monitoring procedure not performed [Unknown]
  - Product use in unapproved indication [Unknown]
  - Decreased appetite [Recovered/Resolved]
  - Constipation [Recovered/Resolved]
  - Salivary gland pain [Recovered/Resolved]
  - Neuropathy peripheral [Not Recovered/Not Resolved]
  - Insomnia [Recovering/Resolving]
  - Noninfective sialoadenitis [Recovered/Resolved]
  - Infected bite [Recovered/Resolved]
  - Localised infection [Recovered/Resolved]
  - Hip arthroplasty [Recovering/Resolving]
  - Stomatitis [Recovered/Resolved]
  - Product dose omission issue [Unknown]

NARRATIVE: CASE EVENT DATE: 20200515
